FAERS Safety Report 9174130 (Version 1)
Quarter: 2013Q1

REPORT INFORMATION
  Report Type: Spontaneous
  Country: US (occurrence: None)
  Receive Date: 20130318
  Receipt Date: 20130318
  Transmission Date: 20140127
  Serious: Yes (Disabling, Other)
  Sender: FDA-Public Use
  Company Number: IPC201303-000074

PATIENT
  Age: 42 Year
  Sex: Male

DRUGS (4)
  1. ALLOPURINOL [Suspect]
     Dosage: -STOPPED
  2. COLCHICINE [Suspect]
  3. FEBUXOSTAT [Suspect]
  4. PROBENECID [Suspect]

REACTIONS (4)
  - Drug reaction with eosinophilia and systemic symptoms [None]
  - Hepatitis [None]
  - Gouty tophus [None]
  - Joint range of motion decreased [None]
